FAERS Safety Report 9686819 (Version 4)
Quarter: 2014Q3

REPORT INFORMATION
  Report Type: Spontaneous
  Country: ES (occurrence: ES)
  Receive Date: 20131113
  Receipt Date: 20140701
  Transmission Date: 20150326
  Serious: Yes (Disabling, Other)
  Sender: FDA-Public Use
  Company Number: ES-CELGENEUS-144-21660-13105780

PATIENT
  Age: 35 Year
  Sex: Female
  Weight: 105 kg

DRUGS (7)
  1. CABERGOLINA [Concomitant]
     Indication: DYSAESTHESIA
     Route: 065
  2. METAMIZOLE [Concomitant]
     Active Substance: METAMIZOLE
     Indication: DYSAESTHESIA
     Dosage: 50 MICROGRAM
     Route: 048
  3. TRYDANIL H [Concomitant]
     Indication: DYSAESTHESIA
     Route: 065
  4. ABRAXANE [Suspect]
     Active Substance: PACLITAXEL
     Indication: BREAST CANCER
     Route: 041
     Dates: start: 20130709, end: 20130917
  5. HERCEPTIN [Suspect]
     Active Substance: TRASTUZUMAB
     Route: 065
     Dates: start: 20130314, end: 20140416
  6. HERCEPTIN [Suspect]
     Active Substance: TRASTUZUMAB
     Indication: BREAST CANCER
     Route: 065
     Dates: start: 20130708, end: 20130903
  7. DEXKETOPROFEN [Concomitant]
     Active Substance: DEXKETOPROFEN
     Indication: DYSAESTHESIA
     Route: 048

REACTIONS (4)
  - Peripheral motor neuropathy [Not Recovered/Not Resolved]
  - Axonal neuropathy [Not Recovered/Not Resolved]
  - Peripheral sensory neuropathy [Not Recovered/Not Resolved]
  - Paralysis [Not Recovered/Not Resolved]

NARRATIVE: CASE EVENT DATE: 20130820
